FAERS Safety Report 9616414 (Version 1)
Quarter: 2013Q4

REPORT INFORMATION
  Report Type: Spontaneous
  Country: US (occurrence: US)
  Receive Date: 20131011
  Receipt Date: 20131011
  Transmission Date: 20140711
  Serious: Yes (Hospitalization, Other)
  Sender: FDA-Public Use
  Company Number: US-TEVA-436734USA

PATIENT
  Sex: Female

DRUGS (3)
  1. FENTORA [Suspect]
     Indication: BREAKTHROUGH PAIN
     Dates: start: 2010
  2. GABAPENTIN [Concomitant]
     Indication: NEURALGIA
  3. OXYCONTIN [Concomitant]
     Indication: PAIN

REACTIONS (3)
  - Pain [Unknown]
  - Intestinal resection [Unknown]
  - Pain in extremity [Not Recovered/Not Resolved]
